FAERS Safety Report 9988041 (Version 2)
Quarter: 2014Q1

REPORT INFORMATION
  Report Type: Report from Study
  Country: US (occurrence: US)
  Receive Date: 20140307
  Receipt Date: 20140307
  Transmission Date: 20141002
  Serious: Yes (Death)
  Sender: FDA-Public Use
  Company Number: US-B.I. PHARMACEUTICALS,INC./RIDGEFIELD-2013-BI-39670BI

PATIENT
  Sex: Female

DRUGS (3)
  1. GILOTRIF [Suspect]
     Indication: TRACHEAL CANCER
     Dosage: 40 MG
     Route: 048
     Dates: start: 20131001
  2. GILOTRIF [Suspect]
     Indication: LUNG NEOPLASM MALIGNANT
  3. CVS CORTISONE 1% CREAM [Concomitant]
     Route: 065

REACTIONS (2)
  - Death [Fatal]
  - Adverse drug reaction [Unknown]
